FAERS Safety Report 23432798 (Version 2)
Quarter: 2024Q1

REPORT INFORMATION
  Report Type: Spontaneous
  Country: US (occurrence: US)
  Receive Date: 20240123
  Receipt Date: 20240306
  Transmission Date: 20240409
  Serious: No
  Sender: FDA-Public Use
  Company Number: US-PFIZER INC-202400017061

PATIENT
  Sex: Female

DRUGS (1)
  1. PREMARIN [Suspect]
     Active Substance: ESTROGENS, CONJUGATED
     Dosage: USING IT EVERY 3 DAYS
     Route: 067
     Dates: end: 202401

REACTIONS (3)
  - Off label use [Unknown]
  - Product complaint [Unknown]
  - Urine odour abnormal [Unknown]
